FAERS Safety Report 21297877 (Version 1)
Quarter: 2022Q3

REPORT INFORMATION
  Report Type: Spontaneous
  Country: FR (occurrence: FR)
  Receive Date: 20220906
  Receipt Date: 20220906
  Transmission Date: 20221026
  Serious: Yes (Congenital Anomaly, Other)
  Sender: FDA-Public Use
  Company Number: None

PATIENT
  Sex: Male
  Weight: 1.875 kg

DRUGS (1)
  1. SERTRALINE [Suspect]
     Active Substance: SERTRALINE HYDROCHLORIDE
     Indication: Mental disorder
     Dosage: 50 MG
     Route: 064
     Dates: start: 20201220, end: 20210816

REACTIONS (4)
  - Developmental hip dysplasia [Not Recovered/Not Resolved]
  - Atrial septal defect [Not Recovered/Not Resolved]
  - Low birth weight baby [Not Recovered/Not Resolved]
  - Premature baby [Not Recovered/Not Resolved]

NARRATIVE: CASE EVENT DATE: 20210816
